FAERS Safety Report 15499421 (Version 1)
Quarter: 2018Q4

REPORT INFORMATION
  Report Type: Spontaneous
  Country: US (occurrence: US)
  Receive Date: 20181007
  Receipt Date: 20181007
  Transmission Date: 20190205
  Serious: Yes (Hospitalization)
  Sender: FDA-Public Use
  Company Number: None

PATIENT
  Age: 68 Year
  Sex: Female
  Weight: 63.45 kg

DRUGS (1)
  1. FERUMOXYTOL INFUSION FOR IRON [Suspect]
     Active Substance: FERUMOXYTOL NON-STOICHIOMETRIC MAGNETITE
     Indication: IRON DEFICIENCY ANAEMIA
     Dates: start: 20180924, end: 20181001

REACTIONS (6)
  - Dysphonia [None]
  - Headache [None]
  - Nausea [None]
  - Rash [None]
  - Erythema [None]
  - Incorrect drug administration rate [None]

NARRATIVE: CASE EVENT DATE: 20181004
